FAERS Safety Report 7475645-5 (Version None)
Quarter: 2011Q2

REPORT INFORMATION
  Report Type: 
  Country: None (occurrence: None)
  Receive Date: 20110512
  Receipt Date: 20110427
  Transmission Date: 20111010
  Serious: Yes (Other)
  Sender: FDA-Public Use
  Company Number: FR-JNJFOC-20110501568

PATIENT
  Age: 34 Year
  Sex: Male
  Weight: 71 kg

DRUGS (6)
  1. REMICADE [Suspect]
     Indication: CROHN'S DISEASE
     Route: 042
  2. REMICADE [Suspect]
     Route: 042
  3. AZATHIOPRINE [Concomitant]
     Indication: CROHN'S DISEASE
  4. REMICADE [Suspect]
     Route: 042
  5. SALAZOPYRINE [Concomitant]
     Indication: CROHN'S DISEASE
  6. REMICADE [Suspect]
     Route: 042

REACTIONS (2)
  - ILEAL FISTULA [None]
  - GASTROINTESTINAL FISTULA [None]
